FAERS Safety Report 5278429-1 (Version None)
Quarter: 2007Q1

REPORT INFORMATION
  Report Type: 
  Country: None (occurrence: None)
  Receive Date: 20070322
  Receipt Date: 20070321
  Transmission Date: 20070707
  Serious: Yes (Hospitalization)
  Sender: FDA-Public Use
  Company Number: L07-TUR-01239-01

PATIENT
  Age: 12 Year
  Sex: Female

DRUGS (3)
  1. CARBAMAZEPINE [Suspect]
     Indication: EPILEPSY
     Dosage: 14 TABLET ONCE
  2. CARBAMAZEPINE [Suspect]
     Indication: EPILEPSY
  3. PHENYTOIN [Concomitant]

REACTIONS (10)
  - COORDINATION ABNORMAL [None]
  - DRUG TOXICITY [None]
  - GRAND MAL CONVULSION [None]
  - HAEMODIALYSIS [None]
  - LOSS OF CONSCIOUSNESS [None]
  - MIOSIS [None]
  - OVERDOSE [None]
  - PUPILLARY REFLEX IMPAIRED [None]
  - SOMNOLENCE [None]
  - TREATMENT NONCOMPLIANCE [None]
